FAERS Safety Report 12737207 (Version 1)
Quarter: 2016Q3

REPORT INFORMATION
  Report Type: Report from Study
  Country: CA (occurrence: CA)
  Receive Date: 20160913
  Receipt Date: 20160913
  Transmission Date: 20161109
  Serious: Yes (Other)
  Sender: FDA-Public Use
  Company Number: CA-JNJFOC-20160906681

PATIENT
  Age: 16 Year
  Sex: Male
  Weight: 58 kg

DRUGS (2)
  1. REMICADE [Suspect]
     Active Substance: INFLIXIMAB
     Indication: COLITIS ULCERATIVE
     Route: 042
     Dates: start: 20160128
  2. REMICADE [Suspect]
     Active Substance: INFLIXIMAB
     Indication: COLITIS ULCERATIVE
     Dosage: CONFLICTIONGLY REPORTED AS 280MG (WITH A DIFFERENT TREATMENT ID) FOR THE SAME DATE
     Route: 042
     Dates: start: 20160906

REACTIONS (6)
  - Product use issue [Unknown]
  - Abdominal pain [Not Recovered/Not Resolved]
  - Haematochezia [Recovering/Resolving]
  - Diarrhoea [Not Recovered/Not Resolved]
  - General physical health deterioration [Unknown]
  - Off label use [Unknown]

NARRATIVE: CASE EVENT DATE: 20160128
